FAERS Safety Report 9549296 (Version 1)
Quarter: 2013Q2

REPORT INFORMATION
  Report Type: Spontaneous
  Country: US (occurrence: None)
  Receive Date: 20130627
  Receipt Date: 20130627
  Transmission Date: 20140414
  Serious: No
  Sender: FDA-Public Use
  Company Number: 1000043981

PATIENT
  Age: 76 Year
  Sex: Female

DRUGS (5)
  1. LINZESS (LINACLOTIDE) (145 MICROGRAM, CAPSULES) [Suspect]
     Dosage: 145 MCG (145 MCG, 1 IN 1 D), ORAL
     Route: 048
     Dates: start: 20130331
  2. GEMFIBROZIL (GEMFIBROZIL) (GEMFIBROZIL) [Concomitant]
  3. ZETIA (EZETIMIBE) (EZETIMIBE) [Concomitant]
  4. TRIAMTERENE (TRIAMTERENE) (TRIAMTERENE) [Concomitant]
  5. PREMARIN (ESTROGENS CONJUGATED) (ESTROGENS CONJUGATED) [Concomitant]

REACTIONS (1)
  - Abdominal distension [None]
